FAERS Safety Report 12762576 (Version 2)
Quarter: 2016Q3

REPORT INFORMATION
  Report Type: Spontaneous
  Country: HR (occurrence: HR)
  Receive Date: 20160920
  Receipt Date: 20160928
  Transmission Date: 20161109
  Serious: Yes (Hospitalization, Other)
  Sender: FDA-Public Use
  Company Number: HR-PFIZER INC-2016435452

PATIENT
  Sex: Female

DRUGS (2)
  1. PHEMITON [Suspect]
     Active Substance: MEPHOBARBITAL
     Dosage: 6 G
     Route: 048
     Dates: start: 20160222
  2. LEVETIRACETAM. [Suspect]
     Active Substance: LEVETIRACETAM
     Dosage: 60 G
     Route: 048
     Dates: start: 20160222

REACTIONS (3)
  - Poisoning deliberate [Unknown]
  - Suicide attempt [Unknown]
  - Somnolence [Unknown]

NARRATIVE: CASE EVENT DATE: 20160222
